FAERS Safety Report 6769621-5 (Version None)
Quarter: 2010Q2

REPORT INFORMATION
  Report Type: 
  Country: None (occurrence: None)
  Receive Date: 20100608
  Receipt Date: 20100528
  Transmission Date: 20101027
  Serious: Yes (Other)
  Sender: FDA-Public Use
  Company Number: 2010SP030014

PATIENT
  Age: 79 Year
  Sex: Male

DRUGS (1)
  1. TEMODAL [Suspect]
     Indication: GLIOBLASTOMA
     Dosage: PO
     Route: 048
     Dates: start: 20100101, end: 20100101

REACTIONS (3)
  - OEDEMA PERIPHERAL [None]
  - RASH MACULO-PAPULAR [None]
  - VASCULITIS [None]
